FAERS Safety Report 24195400 (Version 1)
Quarter: 2024Q3

REPORT INFORMATION
  Report Type: Spontaneous
  Country: GB (occurrence: GB)
  Receive Date: 20240809
  Receipt Date: 20240809
  Transmission Date: 20241017
  Serious: Yes (Death)
  Sender: MYLAN
  Company Number: XI-LDELTA-2024000907

PATIENT
  Age: 74 Year
  Sex: Male

DRUGS (19)
  1. CLOZAPINE [Suspect]
     Active Substance: CLOZAPINE
     Indication: Product used for unknown indication
     Dosage: 100 MILLIGRAM
     Route: 065
     Dates: start: 20240615, end: 20240714
  2. FLUCLOXACILLIN [Concomitant]
     Active Substance: FLUCLOXACILLIN
     Dosage: 500 MILLIGRAM
     Route: 065
     Dates: start: 20240618
  3. MOMETASONE [Concomitant]
     Active Substance: MOMETASONE
     Dosage: 2 SPRAYS/BOTH NOSTRILS ONCE A DAY
     Route: 065
     Dates: start: 20240618
  4. OMEPRAZOLE [Concomitant]
     Active Substance: OMEPRAZOLE
     Dosage: 20 MILLIGRAM, QD
     Route: 065
     Dates: start: 20240618
  5. DERMOL [Concomitant]
     Active Substance: BENZALKONIUM CHLORIDE\CHLORHEXIDINE HYDROCHLORIDE\ISOPROPYL MYRISTATE\PARAFFIN
     Indication: Dry skin
     Dosage: 1 DOSAGE FORM
     Route: 065
     Dates: start: 20240618
  6. ALVERINE [Concomitant]
     Active Substance: ALVERINE
     Dosage: 120 MILLIGRAM
     Route: 065
     Dates: start: 20240618
  7. SENNA [Concomitant]
     Active Substance: SENNA LEAF\SENNOSIDES\SENNOSIDES A AND B
     Dosage: 15 MILLIGRAM, QD
     Route: 065
     Dates: start: 20240618
  8. ATORVASTATIN [Concomitant]
     Active Substance: ATORVASTATIN
     Dosage: 20 MILLIGRAM, QD
     Route: 065
     Dates: start: 20240618
  9. AMLODIPINE [Concomitant]
     Active Substance: AMLODIPINE BESYLATE
     Dosage: 5 MILLIGRAM, QD
     Route: 065
     Dates: start: 20240618
  10. NICOTINE [Concomitant]
     Active Substance: NICOTINE
     Dosage: 25MG/16 HOURS
     Route: 065
     Dates: start: 20240618
  11. BISOPROLOL [Concomitant]
     Active Substance: BISOPROLOL\BISOPROLOL FUMARATE
     Dosage: 2.5 MILLIGRAM, QD
     Route: 065
     Dates: start: 20240618
  12. ISOSORBIDE MONONITRATE [Concomitant]
     Active Substance: ISOSORBIDE MONONITRATE
     Dosage: 50 MILLIGRAM, QD
     Route: 065
     Dates: start: 20240618
  13. BEZAFIBRATE [Concomitant]
     Active Substance: BEZAFIBRATE
     Dosage: 400 MILLIGRAM, QD
     Route: 065
     Dates: start: 20240618
  14. ALLOPURINOL [Concomitant]
     Active Substance: ALLOPURINOL
     Dosage: 100 MILLIGRAM, QD
     Route: 065
     Dates: start: 20240618
  15. ACETAMINOPHEN [Concomitant]
     Active Substance: ACETAMINOPHEN
     Indication: Pain
     Dosage: 1000 MILLIGRAM (4 TIMES DAILY WHEN REQUIRED)
     Route: 065
     Dates: start: 20240618
  16. ACETAMINOPHEN [Concomitant]
     Active Substance: ACETAMINOPHEN
     Indication: Pyrexia
  17. RIVAROXABAN [Concomitant]
     Active Substance: RIVAROXABAN
     Dosage: 15 MILLIGRAM, QD
     Route: 065
     Dates: start: 20240618
  18. DOCUSATE SODIUM [Concomitant]
     Active Substance: DOCUSATE SODIUM
     Dosage: 100 MILLIGRAM, QD
     Route: 065
     Dates: start: 20240618
  19. UMECLIDINIUM [Concomitant]
     Active Substance: UMECLIDINIUM
     Dosage: 1 DOSAGE FORM, QD
     Route: 065
     Dates: start: 20240618

REACTIONS (2)
  - Respiratory failure [Fatal]
  - Chronic obstructive pulmonary disease [Fatal]

NARRATIVE: CASE EVENT DATE: 20240622
